FAERS Safety Report 5902841-8 (Version None)
Quarter: 2008Q3

REPORT INFORMATION
  Report Type: 
  Country: None (occurrence: None)
  Receive Date: 20080929
  Receipt Date: 20080929
  Transmission Date: 20090109
  Serious: Yes (Hospitalization)
  Sender: FDA-Public Use
  Company Number: None

PATIENT
  Age: 22 Year
  Sex: Female
  Weight: 51.7101 kg

DRUGS (1)
  1. LEXAPRO [Suspect]
     Indication: ANXIETY

REACTIONS (11)
  - ABDOMINAL PAIN UPPER [None]
  - ASTHENIA [None]
  - BLOOD PRESSURE DECREASED [None]
  - BURNING SENSATION [None]
  - FAECAL INCONTINENCE [None]
  - FALL [None]
  - MALAISE [None]
  - MUSCLE SPASMS [None]
  - PYREXIA [None]
  - VEIN DISORDER [None]
  - VOMITING [None]
